FAERS Safety Report 4553023-6 (Version None)
Quarter: 2005Q1

REPORT INFORMATION
  Report Type: 
  Country: None (occurrence: None)
  Receive Date: 20050114
  Receipt Date: 20041026
  Transmission Date: 20050727
  Serious: Yes (Death, Hospitalization, Other)
  Sender: FDA-Public Use
  Company Number: AU-BRISTOL-MYERS SQUIBB COMPANY-12744702

PATIENT
  Age: 66 Year
  Sex: Male

DRUGS (16)
  1. IFOSFAMIDE [Suspect]
     Indication: NON-HODGKIN'S LYMPHOMA
     Dates: start: 20040927, end: 20040927
  2. METHOTREXATE [Suspect]
     Dosage: FOLLOWED BY 1600 MG OVER 22 HOURS.
     Route: 042
     Dates: start: 20040811, end: 20040811
  3. METHOTREXATE [Suspect]
     Route: 042
     Dates: start: 20040811, end: 20040812
  4. VINORELBINE [Suspect]
     Indication: NON-HODGKIN'S LYMPHOMA
     Dates: start: 20040927, end: 20040927
  5. GEMZAR [Suspect]
     Indication: NON-HODGKIN'S LYMPHOMA
     Dates: start: 20040927, end: 20040927
  6. CYTARABINE [Suspect]
     Dates: start: 20040812, end: 20040813
  7. DEXAMETHASONE [Concomitant]
     Dates: start: 20040927
  8. MESNA [Concomitant]
     Dates: start: 20040927
  9. TROPISETRON [Concomitant]
     Indication: ANTIEMETIC SUPPORTIVE CARE
     Dates: start: 20040927
  10. RANITIDINE [Concomitant]
     Dates: start: 20040927
  11. AUGMENTIN DUO FORTE [Concomitant]
     Indication: PNEUMONIA
     Dates: start: 20040924
  12. ATENOLOL [Concomitant]
     Indication: BLOOD PRESSURE
     Dates: start: 20040920
  13. SEPTRA [Concomitant]
     Dates: start: 20040917
  14. ALLOPURINOL [Concomitant]
     Indication: GOUT
     Route: 048
  15. CITALOPRAM [Concomitant]
     Indication: DEPRESSION
  16. LEUCOVORIN [Concomitant]

REACTIONS (20)
  - ATRIAL FIBRILLATION [None]
  - ATRIAL FLUTTER [None]
  - CELLULITIS [None]
  - CEREBELLAR SYNDROME [None]
  - COMA [None]
  - DIARRHOEA [None]
  - ENCEPHALOPATHY [None]
  - FAECAL INCONTINENCE [None]
  - FATIGUE [None]
  - GENERAL PHYSICAL HEALTH DETERIORATION [None]
  - HYPOKINESIA [None]
  - HYPOPHOSPHATAEMIA [None]
  - MALIGNANT NEOPLASM PROGRESSION [None]
  - NEUTROPENIA [None]
  - NON-HODGKIN'S LYMPHOMA [None]
  - PNEUMOCYSTIS JIROVECI PNEUMONIA [None]
  - SOMNOLENCE [None]
  - THROMBOCYTOPENIA [None]
  - URINARY INCONTINENCE [None]
  - WEIGHT DECREASED [None]
